FAERS Safety Report 14950664 (Version 1)
Quarter: 2018Q2

REPORT INFORMATION
  Report Type: Spontaneous
  Country: ES (occurrence: ES)
  Receive Date: 20180530
  Receipt Date: 20180530
  Transmission Date: 20180711
  Serious: Yes (Life-Threatening, Hospitalization)
  Sender: FDA-Public Use
  Company Number: ES-JNJFOC-20180530690

PATIENT
  Age: 72 Year
  Sex: Female

DRUGS (4)
  1. IBUPROFENO (1769A) [Suspect]
     Active Substance: IBUPROFEN
     Route: 048
  2. NOLOTIL (METAMIZOLE MAGNESIUM) [Interacting]
     Active Substance: METAMIZOLE MAGNESIUM
     Indication: PAIN
     Dosage: 575 MG HARD CAPSULES, 10 CAPSULES
     Route: 048
     Dates: start: 20170726, end: 20170918
  3. ACETYLSALICYLIC ACID [Interacting]
     Active Substance: ASPIRIN
     Indication: ATRIAL FIBRILLATION
     Route: 048
     Dates: start: 20110607
  4. IBUPROFENO (1769A) [Suspect]
     Active Substance: IBUPROFEN
     Indication: PAIN
     Route: 048
     Dates: start: 20170824, end: 20170830

REACTIONS (1)
  - Upper gastrointestinal haemorrhage [Recovered/Resolved]

NARRATIVE: CASE EVENT DATE: 20170917
